FAERS Safety Report 21841548 (Version 1)
Quarter: 2023Q1

REPORT INFORMATION
  Report Type: Spontaneous
  Country: SA (occurrence: None)
  Receive Date: 20230110
  Receipt Date: 20230110
  Transmission Date: 20230418
  Serious: Yes (Other)
  Sender: FDA-Public Use
  Company Number: SA-Unichem Pharmaceuticals (USA) Inc-UCM202301-000018

PATIENT
  Age: 59 Year
  Sex: Male

DRUGS (1)
  1. TADALAFIL [Suspect]
     Active Substance: TADALAFIL
     Indication: Product used for unknown indication
     Dosage: OCCASIONALLY OVER 1 MONTH PRIOR TO PRESENTATION

REACTIONS (1)
  - Central serous chorioretinopathy [Recovered/Resolved]
